FAERS Safety Report 8583231-9 (Version None)
Quarter: 2012Q3

REPORT INFORMATION
  Report Type: 
  Country: None (occurrence: None)
  Receive Date: 20120727
  Receipt Date: 20120706
  Transmission Date: 20120928
  Serious: Yes (Hospitalization)
  Sender: FDA-Public Use
  Company Number: JPI-P-022649

PATIENT
  Age: 29 Year
  Sex: Female

DRUGS (4)
  1. VENLAFAXINE [Concomitant]
  2. XYREM [Suspect]
     Indication: CATAPLEXY
     Dosage: 3 GM, 1 D; 3.75 GM, 1 D), ORAL
     Dates: start: 20120622, end: 20120702
  3. XYREM [Suspect]
     Indication: CATAPLEXY
     Dosage: 3 GM, 1 D; 3.75 GM, 1 D), ORAL
     Dates: start: 20120703, end: 20120703
  4. MODAFINIL [Concomitant]

REACTIONS (2)
  - ANXIETY [None]
  - FOREIGN TRAVEL [None]
